FAERS Safety Report 14076178 (Version 2)
Quarter: 2017Q4

REPORT INFORMATION
  Report Type: Spontaneous
  Country: US (occurrence: US)
  Receive Date: 20171010
  Receipt Date: 20171113
  Transmission Date: 20180321
  Serious: Yes (Other)
  Sender: FDA-Public Use
  Company Number: US-009507513-1710USA004991

PATIENT
  Age: 75 Year
  Sex: Male

DRUGS (6)
  1. HYDROCORTONE [Suspect]
     Active Substance: HYDROCORTISONE
     Indication: NON-SECRETORY ADENOMA OF PITUITARY
     Dosage: 20 MG, BID
     Route: 048
  2. VANCOMYCIN [Suspect]
     Active Substance: VANCOMYCIN
     Indication: STAPHYLOCOCCAL INFECTION
     Dosage: UNK
  3. CEFEPIME [Suspect]
     Active Substance: CEFEPIME HYDROCHLORIDE
     Indication: STAPHYLOCOCCAL INFECTION
     Dosage: UNK
  4. HYDROCORTONE [Suspect]
     Active Substance: HYDROCORTISONE
     Dosage: TAPPERED TO 20 MG, QD
     Route: 048
  5. METRONIDAZOLE. [Suspect]
     Active Substance: METRONIDAZOLE
     Indication: STAPHYLOCOCCAL INFECTION
     Dosage: UNK
  6. CEFTRIAXONE. [Suspect]
     Active Substance: CEFTRIAXONE
     Indication: STAPHYLOCOCCAL INFECTION
     Dosage: UNK

REACTIONS (2)
  - Meningitis candida [Recovered/Resolved]
  - Product use in unapproved indication [Unknown]
